FAERS Safety Report 5170657-9 (Version None)
Quarter: 2006Q4

REPORT INFORMATION
  Report Type: 
  Country: None (occurrence: None)
  Receive Date: 20061205
  Receipt Date: 20061116
  Transmission Date: 20070319
  Serious: Yes (Hospitalization)
  Sender: FDA-Public Use
  Company Number: 2006SP006800

PATIENT
  Age: 63 Year
  Sex: Male

DRUGS (4)
  1. INTERFERON ALFA -2B [Suspect]
     Indication: PANCREATIC CARCINOMA
     Dosage: TIW; SC
     Route: 058
  2. CISPLATIN [Suspect]
     Indication: PANCREATIC CARCINOMA
     Dosage: 30 MG/M2; QW
  3. FLUOROURACIL [Concomitant]
  4. RADIOTHERAPY [Concomitant]

REACTIONS (11)
  - BLOOD ELECTROLYTES DECREASED [None]
  - BLOOD POTASSIUM DECREASED [None]
  - DEHYDRATION [None]
  - DIARRHOEA [None]
  - ELECTROCARDIOGRAM QT PROLONGED [None]
  - ELECTROCARDIOGRAM ST SEGMENT DEPRESSION [None]
  - FALL [None]
  - HYPOCALCAEMIA [None]
  - PARAESTHESIA [None]
  - REFUSAL OF TREATMENT BY PATIENT [None]
  - TETANY [None]
